FAERS Safety Report 6687533-2 (Version None)
Quarter: 2010Q2

REPORT INFORMATION
  Report Type: 
  Country: None (occurrence: None)
  Receive Date: 20100419
  Receipt Date: 20091123
  Transmission Date: 20101027
  Serious: Yes (Other)
  Sender: FDA-Public Use
  Company Number: US-ABBOTT-09P-163-0607045-00

PATIENT
  Sex: Female
  Weight: 35.7 kg

DRUGS (1)
  1. LUPRON DEPOT-PED [Suspect]
     Indication: PRECOCIOUS PUBERTY
     Route: 030
     Dates: start: 20090101, end: 20091027

REACTIONS (3)
  - INJECTION SITE ABSCESS [None]
  - INJECTION SITE PAIN [None]
  - INJECTION SITE SWELLING [None]
